FAERS Safety Report 21232571 (Version 3)
Quarter: 2022Q3

REPORT INFORMATION
  Report Type: Report from Study
  Country: US (occurrence: US)
  Receive Date: 20220819
  Receipt Date: 20220923
  Transmission Date: 20221027
  Serious: Yes (Death, Hospitalization, Other)
  Sender: FDA-Public Use
  Company Number: US-TAKEDA-2022TUS054399

PATIENT
  Sex: Female

DRUGS (1)
  1. MARIBAVIR [Suspect]
     Active Substance: MARIBAVIR
     Indication: Cytomegalovirus infection
     Dosage: 400 MILLIGRAM, BID
     Route: 048
     Dates: start: 20220721

REACTIONS (5)
  - Death [Fatal]
  - Urinary tract infection [Unknown]
  - Endotracheal intubation [Unknown]
  - Fatigue [Unknown]
  - Diarrhoea [Unknown]
